FAERS Safety Report 15680578 (Version 1)
Quarter: 2018Q4

REPORT INFORMATION
  Report Type: Spontaneous
  Country: US (occurrence: US)
  Receive Date: 20181202
  Receipt Date: 20181202
  Transmission Date: 20190205
  Serious: Yes (Disabling)
  Sender: FDA-Public Use
  Company Number: None

PATIENT
  Age: 60 Year
  Sex: Female
  Weight: 49.5 kg

DRUGS (8)
  1. LATANOPROST OPHTHALMIC SOLUTION 0.005% 125 MCG/2.5 ML [Suspect]
     Active Substance: LATANOPROST
     Indication: OCULAR HYPERTENSION
     Dosage: ?          QUANTITY:1 DROP(S);?
     Route: 047
     Dates: start: 20181114, end: 20181115
  2. TRAVATAN Z [Suspect]
     Active Substance: TRAVOPROST
     Indication: OCULAR HYPERTENSION
     Dosage: ?          QUANTITY:1 DROP(S);?
     Route: 047
     Dates: start: 20181116, end: 20181117
  3. MUCOPHENOLATE MOFETIL [Concomitant]
  4. MEGA FOOD MULTI FOR WOMEN 55+ [Concomitant]
  5. DORZOLAMIDE HCL [Concomitant]
     Active Substance: DORZOLAMIDE HYDROCHLORIDE
  6. TYLENOL [Concomitant]
     Active Substance: ACETAMINOPHEN
  7. TIMOLOL MALEATE. [Concomitant]
     Active Substance: TIMOLOL MALEATE
  8. BAYER ASPIRIN [Concomitant]
     Active Substance: ASPIRIN

REACTIONS (7)
  - Eye irritation [None]
  - Dry eye [None]
  - Eyelid ptosis [None]
  - Eyelid disorder [None]
  - Eczema [None]
  - Eye inflammation [None]
  - Migraine [None]

NARRATIVE: CASE EVENT DATE: 20181114
